FAERS Safety Report 6517721-7 (Version None)
Quarter: 2009Q4

REPORT INFORMATION
  Report Type: 
  Country: None (occurrence: None)
  Receive Date: 20091224
  Receipt Date: 20091214
  Transmission Date: 20100525
  Serious: Yes (Hospitalization)
  Sender: FDA-Public Use
  Company Number: FR-BRISTOL-MYERS SQUIBB COMPANY-14905251

PATIENT
  Age: 67 Year
  Sex: Male

DRUGS (3)
  1. ERBITUX [Suspect]
     Indication: PANCREATIC CARCINOMA
     Route: 042
     Dates: start: 20080917, end: 20080917
  2. ELOXATIN [Suspect]
     Indication: PANCREATIC CARCINOMA
     Route: 042
     Dates: start: 20080917, end: 20080917
  3. FLUOROURACIL [Suspect]
     Indication: PANCREATIC CARCINOMA
     Route: 042
     Dates: start: 20080917

REACTIONS (1)
  - DISSEMINATED INTRAVASCULAR COAGULATION [None]
